FAERS Safety Report 7492961-1 (Version None)
Quarter: 2011Q2

REPORT INFORMATION
  Report Type: 
  Country: None (occurrence: None)
  Receive Date: 20110511
  Receipt Date: 20110428
  Transmission Date: 20111010
  Serious: No
  Sender: FDA-Public Use
  Company Number: 2011SP018307

PATIENT
  Sex: Female

DRUGS (1)
  1. MERCILON (DESOGESTREL/ETHINYLESTRADIOL /00570801/) [Suspect]
     Indication: CONTRACEPTION
     Dates: start: 20110415

REACTIONS (5)
  - HYPOMENORRHOEA [None]
  - PRURITUS [None]
  - RASH [None]
  - VAGINAL HAEMORRHAGE [None]
  - ACNE [None]
